FAERS Safety Report 19674177 (Version 1)
Quarter: 2021Q3

REPORT INFORMATION
  Report Type: Spontaneous
  Country: US (occurrence: US)
  Receive Date: 20210809
  Receipt Date: 20210809
  Transmission Date: 20211014
  Serious: Yes (Hospitalization, Other)
  Sender: FDA-Public Use
  Company Number: US-PURACAP-US-2021EPCLIT00829

PATIENT
  Age: 67 Year
  Sex: Male

DRUGS (5)
  1. IBUPROFEN. [Suspect]
     Active Substance: IBUPROFEN
     Indication: ARTHRALGIA
     Route: 065
  2. METOLAZONE. [Interacting]
     Active Substance: METOLAZONE
     Indication: POLYURIA
     Route: 065
  3. FUROSEMIDE. [Interacting]
     Active Substance: FUROSEMIDE
     Indication: POLYURIA
     Route: 042
  4. PREDNISONE. [Interacting]
     Active Substance: PREDNISONE
     Indication: BLOOD CREATININE ABNORMAL
     Route: 065
  5. IBUPROFEN. [Suspect]
     Active Substance: IBUPROFEN
     Route: 065

REACTIONS (4)
  - Glomerulonephritis membranous [Recovering/Resolving]
  - Glomerulonephritis minimal lesion [Recovering/Resolving]
  - Tubulointerstitial nephritis [Recovering/Resolving]
  - Drug ineffective [Unknown]
